FAERS Safety Report 24414963 (Version 1)
Quarter: 2024Q4

REPORT INFORMATION
  Report Type: Spontaneous
  Country: CL (occurrence: CL)
  Receive Date: 20241009
  Receipt Date: 20241009
  Transmission Date: 20250115
  Serious: Yes (Hospitalization)
  Sender: CMP PHARMA
  Company Number: CL-CMP PHARMA-2024CMP00061

PATIENT
  Age: 37 Year
  Sex: Male
  Weight: 44 kg

DRUGS (8)
  1. ISONIAZID [Suspect]
     Active Substance: ISONIAZID
     Indication: Tuberculosis
     Dosage: 200 MG, 1X/DAY
     Route: 048
     Dates: start: 2021
  2. ISONIAZID [Suspect]
     Active Substance: ISONIAZID
     Dosage: 6.6 MG/KG/D
  3. ISONIAZID [Suspect]
     Active Substance: ISONIAZID
     Dosage: 300 MG, 1X/DAY
     Route: 048
  4. RIFAMPIN [Concomitant]
     Active Substance: RIFAMPIN
     Indication: Tuberculosis
     Dosage: 450 MG, 1X/DAY
     Route: 048
  5. RIFAMPIN [Concomitant]
     Active Substance: RIFAMPIN
     Dosage: 600 MG, 1X/DAY
     Route: 048
  6. LEVOFLOXACIN [Concomitant]
     Active Substance: LEVOFLOXACIN
     Indication: Tuberculosis
     Dosage: 500 MG, 1X/DAY
     Route: 051
  7. MEROPENEM [Concomitant]
     Active Substance: MEROPENEM
     Indication: Tuberculosis
     Dosage: 3 G, 1X/DAY
     Route: 051
  8. PYRIDOXINE [Concomitant]
     Active Substance: PYRIDOXINE
     Indication: Supplementation therapy
     Dosage: 50 MG, 1X/DAY
     Route: 048

REACTIONS (1)
  - Impaired gastric emptying [Recovered/Resolved]
